FAERS Safety Report 12266180 (Version 1)
Quarter: 2016Q2

REPORT INFORMATION
  Report Type: Spontaneous
  Country: US (occurrence: None)
  Receive Date: 20160413
  Receipt Date: 20160413
  Transmission Date: 20160815
  Serious: Yes (Life-Threatening, Hospitalization, Other)
  Sender: FDA-Public Use
  Company Number: None

PATIENT
  Age: 34 Year
  Sex: Female
  Weight: 58.97 kg

DRUGS (1)
  1. METOCLOPRAMIDE 10MG WATSON PHARMACEUTICAL [Suspect]
     Active Substance: METOCLOPRAMIDE HYDROCHLORIDE
     Indication: LACTATION DISORDER
     Route: 048
     Dates: start: 20160405, end: 20160406

REACTIONS (1)
  - Dystonia [None]

NARRATIVE: CASE EVENT DATE: 20160406
